FAERS Safety Report 6213111-5 (Version None)
Quarter: 2009Q2

REPORT INFORMATION
  Report Type: 
  Country: None (occurrence: None)
  Receive Date: 20090603
  Receipt Date: 20090527
  Transmission Date: 20091009
  Serious: Yes (Other)
  Sender: FDA-Public Use
  Company Number: B0575083A

PATIENT
  Sex: Male

DRUGS (7)
  1. ARIXTRA [Suspect]
     Indication: THROMBOSIS PROPHYLAXIS
     Dosage: 2.5MG PER DAY
     Route: 058
     Dates: start: 20090417, end: 20090423
  2. UNKNOWN DRUG [Concomitant]
     Dosage: .5MG PER DAY
     Route: 048
     Dates: start: 20090414, end: 20090512
  3. NIFEDIPINE [Concomitant]
     Dosage: 20MG PER DAY
     Route: 048
     Dates: start: 20090414, end: 20090512
  4. UNKNOWN DRUG [Concomitant]
     Dosage: 25MG PER DAY
     Route: 048
     Dates: start: 20090414, end: 20090512
  5. LOXONIN [Concomitant]
     Indication: ANALGESIA
     Route: 048
     Dates: start: 20090417, end: 20090423
  6. MUCOSTA [Concomitant]
     Route: 048
     Dates: start: 20090417, end: 20090423
  7. PANSPORIN [Concomitant]
     Indication: INFECTION PROPHYLAXIS
     Dosage: 2G PER DAY
     Dates: start: 20090415, end: 20090417

REACTIONS (1)
  - HEPATIC FUNCTION ABNORMAL [None]
